FAERS Safety Report 6102892-7 (Version None)
Quarter: 2009Q1

REPORT INFORMATION
  Report Type: 
  Country: None (occurrence: None)
  Receive Date: 20090303
  Receipt Date: 20090303
  Transmission Date: 20090719
  Serious: Yes (Other)
  Sender: FDA-Public Use
  Company Number: None

PATIENT
  Sex: Male
  Weight: 70.3075 kg

DRUGS (1)
  1. CLINDAMYCIN HCL [Suspect]
     Indication: ENDODONTIC PROCEDURE
     Dosage: 2 NOW DENTAL 1 4XDAILY DENTAL
     Route: 004
     Dates: start: 20090219, end: 20090222

REACTIONS (1)
  - DIARRHOEA [None]
